FAERS Safety Report 9676139 (Version 2)
Quarter: 2013Q4

REPORT INFORMATION
  Report Type: Spontaneous
  Country: BR (occurrence: BR)
  Receive Date: 20131107
  Receipt Date: 20131119
  Transmission Date: 20140711
  Serious: Yes (Hospitalization, Other)
  Sender: FDA-Public Use
  Company Number: BR-BRISTOL-MYERS SQUIBB COMPANY-19680321

PATIENT
  Age: 74 Year
  Sex: Female
  Weight: 51.8 kg

DRUGS (4)
  1. ONGLYZA TABS 5 MG [Suspect]
     Indication: DIABETES MELLITUS
     Dosage: TABS.?FABRICATION DATE: APR/2012
     Route: 048
  2. DIOVAN [Concomitant]
     Indication: HYPERTENSION
  3. RITMONORM [Concomitant]
     Indication: ATRIAL FIBRILLATION
  4. ALPRAZOLAM [Concomitant]
     Indication: INSOMNIA

REACTIONS (6)
  - Breast cancer [Unknown]
  - Ischaemic stroke [Recovering/Resolving]
  - Memory impairment [Unknown]
  - Tremor [Unknown]
  - Emotional disorder [Unknown]
  - Weight decreased [Unknown]
